FAERS Safety Report 19023186 (Version 6)
Quarter: 2021Q2

REPORT INFORMATION
  Report Type: Spontaneous
  Country: CA (occurrence: CA)
  Receive Date: 20210318
  Receipt Date: 20210630
  Transmission Date: 20210717
  Serious: Yes (Other)
  Sender: FDA-Public Use
  Company Number: CA-CELLTRION INC.-2021CA003455

PATIENT

DRUGS (12)
  1. INFLECTRA [Suspect]
     Active Substance: INFLIXIMAB-DYYB
     Dosage: 300 MG, Q 0, 2, 6 WEEKS THEN EVERY 8 WEEKS
     Route: 041
     Dates: start: 20210205
  2. FOLIC ACID. [Concomitant]
     Active Substance: FOLIC ACID
     Dosage: 5 MG, 6 DAYS
     Route: 065
  3. ORILISSA [Concomitant]
     Active Substance: ELAGOLIX SODIUM
     Dosage: UNK
  4. FOLIC ACID. [Concomitant]
     Active Substance: FOLIC ACID
     Dosage: UNK
  5. ORILISSA [Concomitant]
     Active Substance: ELAGOLIX SODIUM
     Dosage: 150 MG, DAILY
     Route: 065
  6. INFLECTRA [Suspect]
     Active Substance: INFLIXIMAB-DYYB
     Dosage: 300 MG, Q 0, 2, 6 WEEKS THEN EVERY 8 WEEKS
     Route: 041
     Dates: start: 20210305
  7. INFLECTRA [Suspect]
     Active Substance: INFLIXIMAB-DYYB
     Dosage: 300 MG, Q 0, 2, 6 WEEKS THEN EVERY 8 WEEKS
     Route: 041
     Dates: start: 20210306
  8. ACETAMINOPHEN. [Concomitant]
     Active Substance: ACETAMINOPHEN
     Indication: PREMEDICATION
     Dosage: 975 MG
     Dates: start: 20210305, end: 20210305
  9. INFLECTRA [Suspect]
     Active Substance: INFLIXIMAB-DYYB
     Indication: RHEUMATOID ARTHRITIS
     Dosage: 300 MG, Q 0, 2, 6 WEEKS THEN EVERY 8 WEEKS
     Route: 041
     Dates: start: 20210118
  10. METHOTREXATE. [Concomitant]
     Active Substance: METHOTREXATE
     Dosage: 20 MG, WEEKLY
     Dates: start: 2018
  11. INFLECTRA [Suspect]
     Active Substance: INFLIXIMAB-DYYB
     Dosage: 300 MG, Q 0, 2, 6 WEEKS THEN EVERY 8 WEEKS
     Route: 041
     Dates: start: 20210305
  12. PREDNISONE. [Concomitant]
     Active Substance: PREDNISONE
     Dosage: UNK (TAPERING)

REACTIONS (14)
  - Cough [Unknown]
  - Chest discomfort [Recovered/Resolved]
  - Heart rate increased [Not Recovered/Not Resolved]
  - Nausea [Recovered/Resolved]
  - Chest pain [Recovered/Resolved]
  - Lymphadenopathy [Not Recovered/Not Resolved]
  - Dyspnoea [Recovered/Resolved]
  - Blood pressure fluctuation [Unknown]
  - Infusion related reaction [Recovered/Resolved]
  - Ovarian cyst [Unknown]
  - Headache [Recovered/Resolved]
  - Bronchospasm [Not Recovered/Not Resolved]
  - Back pain [Recovered/Resolved]
  - Breast tenderness [Not Recovered/Not Resolved]

NARRATIVE: CASE EVENT DATE: 20210305
